FAERS Safety Report 4664238-0 (Version None)
Quarter: 2005Q2

REPORT INFORMATION
  Report Type: 
  Country: None (occurrence: None)
  Receive Date: 20050516
  Receipt Date: 20050516
  Transmission Date: 20051028
  Serious: Yes (Life-Threatening, Hospitalization)
  Sender: FDA-Public Use
  Company Number: None

PATIENT
  Sex: Male
  Weight: 96.5708 kg

DRUGS (10)
  1. TEQUIN [Suspect]
     Indication: PNEUMONIA
     Dosage: 400MG DAILY
     Dates: start: 20050510, end: 20050512
  2. ATENOLOL [Concomitant]
  3. FELODIPINE [Concomitant]
  4. FOSINOPRIL [Concomitant]
  5. GLYBURIDE [Concomitant]
  6. NPH INS [Concomitant]
  7. LASIX [Concomitant]
  8. LEVOTHYROXINE SODIUM [Concomitant]
  9. SIMVASTATIN [Concomitant]
  10. WARFARIN SODIUM [Concomitant]

REACTIONS (2)
  - BLOOD GLUCOSE DECREASED [None]
  - COMA [None]
